FAERS Safety Report 8538217 (Version 5)
Quarter: 2013Q4

REPORT INFORMATION
  Report Type: Spontaneous
  Country: US (occurrence: None)
  Receive Date: 20120315
  Receipt Date: 20131226
  Transmission Date: 20140711
  Serious: Yes (Other)
  Sender: FDA-Public Use
  Company Number: PHHY2011US18841

PATIENT
  Age: 37 Year
  Sex: Female

DRUGS (6)
  1. GILENYA [Suspect]
     Indication: MULTIPLE SCLEROSIS
     Route: 048
     Dates: start: 20110207
  2. NEURONTIN [Concomitant]
  3. AMBIEN [Concomitant]
  4. OMEPRAZOLE (OMEPRAZOLE) [Concomitant]
  5. FLEXERIL [Concomitant]
  6. MEGACE [Concomitant]

REACTIONS (3)
  - Malaise [None]
  - Drug administration error [None]
  - Product physical issue [None]
